FAERS Safety Report 14671093 (Version 1)
Quarter: 2018Q1

REPORT INFORMATION
  Report Type: Spontaneous
  Country: US (occurrence: US)
  Receive Date: 20180322
  Receipt Date: 20180322
  Transmission Date: 20180509
  Serious: Yes (Hospitalization)
  Sender: FDA-Public Use
  Company Number: None

PATIENT
  Age: 66 Year
  Sex: Male

DRUGS (2)
  1. CLONAZEPAM. [Suspect]
     Active Substance: CLONAZEPAM
     Indication: DEMENTIA ALZHEIMER^S TYPE
     Dates: start: 20171120, end: 20171203
  2. CLONAZEPAM. [Suspect]
     Active Substance: CLONAZEPAM
     Indication: DEMENTIA WITH LEWY BODIES
     Dates: start: 20171120, end: 20171203

REACTIONS (6)
  - Gait disturbance [None]
  - Abnormal behaviour [None]
  - Fall [None]
  - Drooling [None]
  - Sedation [None]
  - Agitation [None]
